FAERS Safety Report 16747390 (Version 1)
Quarter: 2019Q3

REPORT INFORMATION
  Report Type: Spontaneous
  Country: US (occurrence: US)
  Receive Date: 20190827
  Receipt Date: 20190827
  Transmission Date: 20191005
  Serious: No
  Sender: FDA-Public Use
  Company Number: US-BAYER-2019-157604

PATIENT

DRUGS (1)
  1. LEVITRA [Suspect]
     Active Substance: VARDENAFIL HYDROCHLORIDE
     Dosage: 1 DF, ONCE

REACTIONS (3)
  - Counterfeit product administered [None]
  - Suspected counterfeit product [None]
  - Drug ineffective [None]
